FAERS Safety Report 11472244 (Version 1)
Quarter: 2015Q3

REPORT INFORMATION
  Report Type: Spontaneous
  Country: US (occurrence: US)
  Receive Date: 20150908
  Receipt Date: 20150908
  Transmission Date: 20151125
  Serious: No
  Sender: FDA-Public Use
  Company Number: US-SA-2015SA083786

PATIENT
  Age: 64 Year
  Sex: Male

DRUGS (8)
  1. TOUJEO [Suspect]
     Active Substance: INSULIN GLARGINE
     Indication: TYPE 1 DIABETES MELLITUS
     Dosage: DOSE:24 UNIT(S)
     Route: 065
     Dates: start: 20150608
  2. SOLOSTAR [Concomitant]
     Active Substance: DEVICE
     Dates: start: 20150608
  3. LEVEMIR [Concomitant]
     Active Substance: INSULIN DETEMIR
  4. HUMULIN N [Concomitant]
     Active Substance: INSULIN HUMAN
  5. LANTUS [Concomitant]
     Active Substance: INSULIN GLARGINE
  6. BGSTAR METER [Concomitant]
     Active Substance: DEVICE
  7. HUMALOG [Concomitant]
     Active Substance: INSULIN LISPRO
  8. APIDRA [Concomitant]
     Active Substance: INSULIN GLULISINE

REACTIONS (1)
  - Blood glucose increased [Unknown]
